FAERS Safety Report 10428109 (Version 5)
Quarter: 2015Q2

REPORT INFORMATION
  Report Type: Spontaneous
  Country: US (occurrence: US)
  Receive Date: 20140903
  Receipt Date: 20150529
  Transmission Date: 20150821
  Serious: Yes (Death, Hospitalization, Disabling, Other)
  Sender: FDA-Public Use
  Company Number: US-009507513-1409USA000934

PATIENT
  Sex: Male
  Weight: 77.98 kg

DRUGS (1)
  1. JANUMET [Suspect]
     Active Substance: METFORMIN HYDROCHLORIDE\SITAGLIPTIN PHOSPHATE
     Indication: TYPE 2 DIABETES MELLITUS
     Dosage: 50/1000 MG, QD
     Route: 048
     Dates: start: 20110210, end: 20120606

REACTIONS (75)
  - Serratia test positive [Recovered/Resolved]
  - Malnutrition [Unknown]
  - Dehydration [Unknown]
  - Splenic vein thrombosis [Unknown]
  - Pollakiuria [Unknown]
  - Erosive oesophagitis [Unknown]
  - Chronic hepatitis [Not Recovered/Not Resolved]
  - Metastases to lung [Unknown]
  - Metastases to liver [Unknown]
  - Enterococcus test positive [Recovered/Resolved]
  - Spinal fusion surgery [Unknown]
  - Insulin-requiring type 2 diabetes mellitus [Unknown]
  - Blood urine [Unknown]
  - Arthropathy [Unknown]
  - Anxiety [Unknown]
  - Portal hypertension [Unknown]
  - Metabolic disorder [Unknown]
  - Gastrooesophageal reflux disease [Unknown]
  - Gastrostomy [Unknown]
  - Peripheral swelling [Unknown]
  - Faecal incontinence [Unknown]
  - Radiotherapy [Unknown]
  - Surgical failure [Unknown]
  - Back pain [Not Recovered/Not Resolved]
  - Pancreatic carcinoma metastatic [Fatal]
  - Stent placement [Unknown]
  - Neurolysis surgical [Unknown]
  - Spinal laminectomy [Unknown]
  - Dry mouth [Unknown]
  - Gastric disorder [Unknown]
  - Blood pressure decreased [Unknown]
  - Varices oesophageal [Unknown]
  - Tonsillectomy [Unknown]
  - Hyperlipidaemia [Unknown]
  - Depression [Unknown]
  - Nephrolithiasis [Unknown]
  - Pylorus dilatation [Unknown]
  - Helicobacter infection [Unknown]
  - Peritonitis bacterial [Unknown]
  - Serratia sepsis [Recovered/Resolved]
  - Neuropathy peripheral [Unknown]
  - Umbilical hernia repair [Unknown]
  - Diverticulum [Unknown]
  - Hypertension [Unknown]
  - Radiotherapy [Unknown]
  - Obstruction gastric [Unknown]
  - Oral candidiasis [Unknown]
  - Myocardial infarction [Unknown]
  - Liver abscess [Recovered/Resolved]
  - Inappropriate schedule of drug administration [Unknown]
  - Essential hypertension [Unknown]
  - Accessory spleen [Unknown]
  - Hordeolum [Unknown]
  - Blood pressure decreased [Unknown]
  - Oesophagogastric fundoplasty [Unknown]
  - Renal cyst [Unknown]
  - Duodenitis [Unknown]
  - Metastases to diaphragm [Unknown]
  - Rhonchi [Unknown]
  - Gastrointestinal disorder [Unknown]
  - Limb operation [Unknown]
  - Hypoaesthesia [Unknown]
  - Bacteraemia [Recovered/Resolved]
  - Decubitus ulcer [Unknown]
  - Constipation [Unknown]
  - Loss of consciousness [Recovered/Resolved]
  - Metastases to peritoneum [Unknown]
  - Ascites [Unknown]
  - Splenic varices [Unknown]
  - Hiatus hernia [Unknown]
  - Hand deformity [Unknown]
  - Tenderness [Unknown]
  - Colitis [Unknown]
  - Cholangitis [Unknown]
  - Diarrhoea [Unknown]

NARRATIVE: CASE EVENT DATE: 2012
